FAERS Safety Report 6688742-9 (Version None)
Quarter: 2010Q2

REPORT INFORMATION
  Report Type: 
  Country: None (occurrence: None)
  Receive Date: 20100420
  Receipt Date: 20100412
  Transmission Date: 20101027
  Serious: Yes (Other)
  Sender: FDA-Public Use
  Company Number: B0645009A

PATIENT
  Age: 38 Year
  Sex: Male

DRUGS (1)
  1. ZOVIRAX [Suspect]
     Route: 048

REACTIONS (2)
  - DELUSION [None]
  - HALLUCINATION [None]
